FAERS Safety Report 25153224 (Version 3)
Quarter: 2025Q3

REPORT INFORMATION
  Report Type: Spontaneous
  Country: EU (occurrence: EU)
  Receive Date: 20250403
  Receipt Date: 20250802
  Transmission Date: 20251021
  Serious: Yes (Other)
  Sender: ALEXION PHARMACEUTICALS
  Company Number: EU-AstraZeneca-CH-00837776A

PATIENT
  Sex: Female
  Weight: 114 kg

DRUGS (16)
  1. TEZSPIRE [Suspect]
     Active Substance: TEZEPELUMAB-EKKO
     Indication: Asthma
     Dosage: 210 MILLIGRAM, Q4W
     Dates: start: 20230621
  2. TEZSPIRE [Suspect]
     Active Substance: TEZEPELUMAB-EKKO
  3. FLUTIFORM [Concomitant]
     Active Substance: FLUTIFORM
  4. SPIRIVA [Concomitant]
     Active Substance: TIOTROPIUM BROMIDE MONOHYDRATE
  5. VENTOLIN [Concomitant]
     Active Substance: ALBUTEROL SULFATE
     Indication: Dyspnoea
  6. MONTELUKAST SODIUM [Concomitant]
     Active Substance: MONTELUKAST SODIUM
     Dosage: 10 MILLIGRAM, QD
     Route: 065
  7. UNSPECIFIED INGREDIENT [Concomitant]
     Active Substance: UNSPECIFIED INGREDIENT
     Route: 065
  8. BILASTINE [Concomitant]
     Active Substance: BILASTINE
     Route: 065
  9. PANTOPRAZOLE [Concomitant]
     Active Substance: PANTOPRAZOLE
  10. MOMETASONE FUROATE [Concomitant]
     Active Substance: MOMETASONE FUROATE
     Route: 065
  11. OLOPATADINE [Concomitant]
     Active Substance: OLOPATADINE
  12. NEBIVOLOL [Concomitant]
     Active Substance: NEBIVOLOL
     Route: 065
  13. LEVOTHYROXINE SODIUM [Concomitant]
     Active Substance: LEVOTHYROXINE SODIUM
     Route: 065
  14. Drovelis [Concomitant]
     Route: 065
  15. Devenal [Concomitant]
     Route: 065
  16. CINNARIZINE [Concomitant]
     Active Substance: CINNARIZINE
     Route: 065

REACTIONS (7)
  - Ischaemic stroke [Unknown]
  - Embolism [Unknown]
  - Asthma [Unknown]
  - Respiratory tract infection [Unknown]
  - Conjunctivitis [Unknown]
  - Sleep apnoea syndrome [Unknown]
  - Urinary tract infection bacterial [Unknown]

NARRATIVE: CASE EVENT DATE: 20250321
